FAERS Safety Report 21243860 (Version 1)
Quarter: 2022Q3

REPORT INFORMATION
  Report Type: Spontaneous
  Country: US (occurrence: None)
  Receive Date: 20220823
  Receipt Date: 20220823
  Transmission Date: 20221027
  Serious: Yes (Hospitalization)
  Sender: FDA-Public Use
  Company Number: US-Emmaus Medical, Inc.-EMM202108-000136

PATIENT
  Age: 41 Year
  Sex: Female

DRUGS (1)
  1. ENDARI [Suspect]
     Active Substance: GLUTAMINE
     Indication: Sickle cell disease
     Route: 048
     Dates: start: 20180705

REACTIONS (2)
  - Sickle cell anaemia with crisis [Recovered/Resolved]
  - Product dose omission issue [Recovered/Resolved]

NARRATIVE: CASE EVENT DATE: 20210814
